FAERS Safety Report 4967177-0 (Version None)
Quarter: 2006Q2

REPORT INFORMATION
  Report Type: 
  Country: None (occurrence: None)
  Receive Date: 20060410
  Receipt Date: 20060329
  Transmission Date: 20061013
  Serious: Yes (Other)
  Sender: FDA-Public Use
  Company Number: 2006GB00533

PATIENT
  Age: 61 Year
  Sex: Female
  Weight: 66 kg

DRUGS (1)
  1. OMEPRAZOLE [Suspect]
     Indication: HYPERCHLORHYDRIA
     Route: 048

REACTIONS (3)
  - LOSS OF CONSCIOUSNESS [None]
  - SKELETAL INJURY [None]
  - SYNCOPE [None]
